FAERS Safety Report 12121768 (Version 2)
Quarter: 2016Q2

REPORT INFORMATION
  Report Type: Spontaneous
  Country: BR (occurrence: BR)
  Receive Date: 20160226
  Receipt Date: 20160425
  Transmission Date: 20160815
  Serious: Yes (Other)
  Sender: FDA-Public Use
  Company Number: PHHY2016BR009088

PATIENT
  Age: 35 Year
  Sex: Female
  Weight: 73 kg

DRUGS (8)
  1. RISPERIDONE SANDOZ [Suspect]
     Active Substance: RISPERIDONE
     Indication: MENTAL IMPAIRMENT
     Dosage: 2 MG, QD
     Route: 048
     Dates: start: 201601
  2. RISPERIDONE SANDOZ [Suspect]
     Active Substance: RISPERIDONE
     Indication: INSOMNIA
  3. QUEROPAX [Concomitant]
     Active Substance: QUETIAPINE FUMARATE
     Indication: PRODUCT USED FOR UNKNOWN INDICATION
     Route: 065
  4. AKINETON [Concomitant]
     Active Substance: BIPERIDEN HYDROCHLORIDE
     Indication: PRODUCT USED FOR UNKNOWN INDICATION
     Route: 065
  5. SEROQUEL [Concomitant]
     Active Substance: QUETIAPINE FUMARATE
     Indication: PRODUCT USED FOR UNKNOWN INDICATION
     Route: 065
  6. RISPERIDONE SANDOZ [Suspect]
     Active Substance: RISPERIDONE
     Indication: DEPRESSION
  7. RISPERIDONE SANDOZ [Suspect]
     Active Substance: RISPERIDONE
     Indication: DRUG DEPENDENCE
  8. QUETIAPINE. [Concomitant]
     Active Substance: QUETIAPINE
     Indication: PRODUCT USED FOR UNKNOWN INDICATION
     Route: 065

REACTIONS (5)
  - Decreased appetite [Recovering/Resolving]
  - Insomnia [Not Recovered/Not Resolved]
  - Chest discomfort [Recovering/Resolving]
  - Restlessness [Not Recovered/Not Resolved]
  - Aggression [Recovered/Resolved]
